FAERS Safety Report 14422287 (Version 2)
Quarter: 2018Q1

REPORT INFORMATION
  Report Type: Spontaneous
  Country: US (occurrence: US)
  Receive Date: 20180123
  Receipt Date: 20180305
  Transmission Date: 20180509
  Serious: No
  Sender: FDA-Public Use
  Company Number: PHHY2018US008977

PATIENT
  Sex: Female

DRUGS (1)
  1. ICAPS [Suspect]
     Active Substance: MINERALS\VITAMINS
     Indication: PRODUCT USED FOR UNKNOWN INDICATION
     Dosage: 1 DF, QD
     Route: 065
     Dates: start: 20180111

REACTIONS (2)
  - Nausea [Recovered/Resolved]
  - Feeling abnormal [Recovered/Resolved]
